FAERS Safety Report 6698480-4 (Version None)
Quarter: 2010Q2

REPORT INFORMATION
  Report Type: 
  Country: None (occurrence: None)
  Receive Date: 20100427
  Receipt Date: 20100421
  Transmission Date: 20101027
  Serious: Yes (Other)
  Sender: FDA-Public Use
  Company Number: JP-ASTRAZENECA-2010SE18326

PATIENT
  Sex: Male

DRUGS (5)
  1. DIPRIVAN [Suspect]
     Indication: MAINTENANCE OF ANAESTHESIA
     Route: 042
  2. SEVOFLURANE [Concomitant]
     Indication: INDUCTION OF ANAESTHESIA
     Route: 055
  3. NITROUS OXIDE [Concomitant]
     Indication: INDUCTION OF ANAESTHESIA
     Route: 055
  4. FENTANYL CITRATE [Concomitant]
     Indication: INDUCTION AND MAINTENANCE OF ANAESTHESIA
  5. ROCURONIUM BROMIDE [Concomitant]
     Indication: INDUCTION AND MAINTENANCE OF ANAESTHESIA

REACTIONS (1)
  - RHABDOMYOLYSIS [None]
